FAERS Safety Report 6017204-7 (Version None)
Quarter: 2008Q4

REPORT INFORMATION
  Report Type: 
  Country: None (occurrence: None)
  Receive Date: 20081223
  Receipt Date: 20081208
  Transmission Date: 20090506
  Serious: Yes (Hospitalization, Other)
  Sender: FDA-Public Use
  Company Number: US-ROCHE-430199

PATIENT
  Sex: Female
  Weight: 149 kg

DRUGS (2)
  1. ACCUTANE [Suspect]
     Indication: ACNE
     Route: 048
     Dates: start: 19821201, end: 19830601
  2. LORAZEPAM [Concomitant]
     Dates: start: 20000315, end: 20000315

REACTIONS (17)
  - ANAEMIA [None]
  - ANXIETY [None]
  - ARTHRALGIA [None]
  - BLOOD THYROID STIMULATING HORMONE INCREASED [None]
  - CROHN'S DISEASE [None]
  - DEPRESSION [None]
  - FATIGUE [None]
  - GASTROOESOPHAGEAL REFLUX DISEASE [None]
  - INFLAMMATORY BOWEL DISEASE [None]
  - INTERSTITIAL LUNG DISEASE [None]
  - INTESTINAL OBSTRUCTION [None]
  - OESOPHAGEAL DISORDER [None]
  - ORAL HERPES [None]
  - OVERDOSE [None]
  - PNEUMONIA [None]
  - PNEUMOPERITONEUM [None]
  - SUICIDE ATTEMPT [None]
